FAERS Safety Report 19674192 (Version 10)
Quarter: 2021Q3

REPORT INFORMATION
  Report Type: Report from Study
  Country: None (occurrence: ES)
  Receive Date: 20210809
  Receipt Date: 20210908
  Transmission Date: 20211014
  Serious: Yes (Hospitalization)
  Sender: FDA-Public Use
  Company Number: ES-ABBVIE-21K-144-4019819-00

PATIENT
  Age: 77 Year
  Sex: Male
  Weight: 62 kg

DRUGS (5)
  1. DUODOPA [Suspect]
     Active Substance: CARBIDOPA\LEVODOPA
     Indication: PARKINSON^S DISEASE
     Route: 050
     Dates: start: 20210708, end: 20210805
  2. DUODOPA [Suspect]
     Active Substance: CARBIDOPA\LEVODOPA
     Dosage: MORNING DOSE LOWERED
     Route: 050
     Dates: start: 20210805, end: 20210811
  3. DUODOPA [Suspect]
     Active Substance: CARBIDOPA\LEVODOPA
     Dosage: CONTINUOUS DOSE 1.7 ML / H, AND EXTRA DOSES 0.8 ML.
     Route: 050
     Dates: start: 20210811, end: 20210816
  4. QUETIAPINE. [Concomitant]
     Active Substance: QUETIAPINE
     Indication: PRODUCT USED FOR UNKNOWN INDICATION
     Route: 048
  5. DUODOPA [Suspect]
     Active Substance: CARBIDOPA\LEVODOPA
     Dosage: MORNING DOSE ONLY PURGE 3.0 ML, CONTINUOUS DOSE 1.5 ML / H, AND?EXTRA DOSES 1.0 ML.
     Route: 050
     Dates: start: 20210816

REACTIONS (19)
  - Malaise [Unknown]
  - Mobility decreased [Unknown]
  - Mobility decreased [Recovered/Resolved]
  - Malaise [Recovered/Resolved]
  - Urticaria [Recovering/Resolving]
  - Disorientation [Recovered/Resolved]
  - Insomnia [Not Recovered/Not Resolved]
  - Disorientation [Not Recovered/Not Resolved]
  - Rash [Recovered/Resolved]
  - Sleep talking [Unknown]
  - Device dislocation [Not Recovered/Not Resolved]
  - Hiccups [Recovered/Resolved]
  - Unevaluable event [Unknown]
  - Cognitive disorder [Recovering/Resolving]
  - Muscle rigidity [Recovered/Resolved]
  - Seizure [Recovered/Resolved]
  - Musculoskeletal stiffness [Recovered/Resolved]
  - Drug tolerance decreased [Unknown]
  - Dysphemia [Unknown]

NARRATIVE: CASE EVENT DATE: 2021
